FAERS Safety Report 5977963-6 (Version None)
Quarter: 2008Q4

REPORT INFORMATION
  Report Type: 
  Country: None (occurrence: None)
  Receive Date: 20081203
  Receipt Date: 20081126
  Transmission Date: 20090506
  Serious: Yes (Hospitalization)
  Sender: FDA-Public Use
  Company Number: GB-B.I. PHARMACEUTICALS,INC./RIDGEFIELD-2008-UK-01801UK

PATIENT
  Age: 44 Year
  Sex: Male

DRUGS (3)
  1. VIRAMUNE [Suspect]
     Indication: HIV INFECTION
     Dosage: 200MG
     Route: 048
  2. VIRAMUNE [Suspect]
     Dosage: 2000MG
     Route: 048
  3. ANTIVIRALS NOS [Concomitant]
     Indication: HIV INFECTION

REACTIONS (1)
  - OVERDOSE [None]
